FAERS Safety Report 5822065-2 (Version None)
Quarter: 2008Q3

REPORT INFORMATION
  Report Type: 
  Country: None (occurrence: None)
  Receive Date: 20080725
  Receipt Date: 20080721
  Transmission Date: 20090109
  Serious: Yes (Other)
  Sender: FDA-Public Use
  Company Number: CH-BAYER-200815778GPV

PATIENT
  Age: 66 Year
  Sex: Female

DRUGS (5)
  1. BETAFERON [Suspect]
     Indication: MULTIPLE SCLEROSIS
     Route: 058
     Dates: start: 19770101
  2. ACETAMINOPHEN [Concomitant]
  3. AMLODIPINE [Concomitant]
     Indication: DRUG USE FOR UNKNOWN INDICATION
  4. BETASERC /BETAHISTINI DIHYDROCHLORIDUM [Concomitant]
     Indication: DRUG USE FOR UNKNOWN INDICATION
  5. CALCIMAGON /CALCII CARBONAS, CHOLECALCIFEROLUM (VIT. D3)) [Concomitant]
     Indication: DRUG USE FOR UNKNOWN INDICATION

REACTIONS (1)
  - LIVER FUNCTION TEST ABNORMAL [None]
